FAERS Safety Report 5348642-3 (Version None)
Quarter: 2007Q2

REPORT INFORMATION
  Report Type: 
  Country: None (occurrence: None)
  Receive Date: 20070605
  Receipt Date: 20070525
  Transmission Date: 20071010
  Serious: Yes (Disabling, Other)
  Sender: FDA-Public Use
  Company Number: 163-21880-07051499

PATIENT
  Age: 64 Year
  Sex: Male

DRUGS (10)
  1. REVLIMID [Suspect]
     Indication: MYELODYSPLASTIC SYNDROME
     Dosage: SEE IMAGE
     Route: 048
     Dates: start: 20060101, end: 20070401
  2. REVLIMID [Suspect]
     Indication: MYELODYSPLASTIC SYNDROME
     Dosage: SEE IMAGE
     Route: 048
     Dates: start: 20070409, end: 20070418
  3. EXJADE [Concomitant]
  4. TOPROL-XL [Concomitant]
  5. FOLIC AICD (FOLIC ACID) [Concomitant]
  6. LEXAPRO [Concomitant]
  7. NEUPOGEN [Concomitant]
  8. MEGACE [Concomitant]
  9. KAOPECTATE (KAOPECTATE) [Concomitant]
  10. IMODIUM [Concomitant]

REACTIONS (14)
  - ABDOMINAL DISCOMFORT [None]
  - CONFUSIONAL STATE [None]
  - DIARRHOEA [None]
  - FATIGUE [None]
  - HAEMOGLOBIN DECREASED [None]
  - IRON OVERLOAD [None]
  - NIGHT SWEATS [None]
  - PLATELET COUNT DECREASED [None]
  - PNEUMONIA [None]
  - SKIN DISCOLOURATION [None]
  - SPLENOMEGALY [None]
  - UPPER RESPIRATORY TRACT INFECTION [None]
  - VENOUS THROMBOSIS [None]
  - WEIGHT DECREASED [None]
